FAERS Safety Report 16305677 (Version 2)
Quarter: 2021Q1

REPORT INFORMATION
  Report Type: Spontaneous
  Country: US (occurrence: US)
  Receive Date: 20190513
  Receipt Date: 20210302
  Transmission Date: 20210419
  Serious: Yes (Other)
  Sender: FDA-Public Use
  Company Number: US-ASTRAZENECA-2019SE64151

PATIENT
  Age: 44 Year
  Sex: Female

DRUGS (36)
  1. LISINOPRIL. [Concomitant]
     Active Substance: LISINOPRIL
     Indication: BLOOD PRESSURE MEASUREMENT
  2. PRAVASTATIN. [Concomitant]
     Active Substance: PRAVASTATIN
     Indication: BLOOD CHOLESTEROL
  3. VITAMIN D [Concomitant]
     Active Substance: VITAMIN D NOS
  4. TRIAMTERENE. [Concomitant]
     Active Substance: TRIAMTERENE
  5. PRILOSEC OTC [Suspect]
     Active Substance: OMEPRAZOLE MAGNESIUM
     Route: 048
  6. ASPIRIN. [Concomitant]
     Active Substance: ASPIRIN
     Indication: ANTICOAGULANT THERAPY
     Dates: start: 2008
  7. ATORVASTATIN [Concomitant]
     Active Substance: ATORVASTATIN
  8. AMLODIPINE BESILATE [Concomitant]
     Active Substance: AMLODIPINE BESYLATE
  9. IOPAMIDOL [Concomitant]
     Active Substance: IOPAMIDOL
  10. PREVACID [Suspect]
     Active Substance: LANSOPRAZOLE
     Indication: GASTROOESOPHAGEAL REFLUX DISEASE
     Route: 065
     Dates: start: 1995, end: 2017
  11. METOPROLOL. [Concomitant]
     Active Substance: METOPROLOL
  12. POTASSIUM CHLORIDE. [Concomitant]
     Active Substance: POTASSIUM CHLORIDE
  13. NIFEDIPINE. [Concomitant]
     Active Substance: NIFEDIPINE
  14. BENZONATATE. [Concomitant]
     Active Substance: BENZONATATE
  15. ACETAMINOPHEN. [Concomitant]
     Active Substance: ACETAMINOPHEN
  16. NAPROXEN. [Concomitant]
     Active Substance: NAPROXEN
  17. PREVACID 24 HR [Suspect]
     Active Substance: LANSOPRAZOLE
     Route: 065
  18. AMOXICILLIN. [Concomitant]
     Active Substance: AMOXICILLIN
  19. ONDANSETRON [Concomitant]
     Active Substance: ONDANSETRON
  20. PRILOSEC [Suspect]
     Active Substance: OMEPRAZOLE MAGNESIUM
     Indication: GASTROOESOPHAGEAL REFLUX DISEASE
     Route: 065
     Dates: start: 2017
  21. HYDROCODONE [Concomitant]
     Active Substance: HYDROCODONE
  22. PENICILLIN [Concomitant]
     Active Substance: PENICILLIN
  23. HYDROCHLOROTHIAZIDE. [Concomitant]
     Active Substance: HYDROCHLOROTHIAZIDE
  24. NEXIUM [Suspect]
     Active Substance: ESOMEPRAZOLE MAGNESIUM
     Indication: GASTROOESOPHAGEAL REFLUX DISEASE
     Route: 048
     Dates: start: 2001, end: 2017
  25. PRILOSEC [Suspect]
     Active Substance: OMEPRAZOLE MAGNESIUM
     Indication: GASTROOESOPHAGEAL REFLUX DISEASE
     Route: 048
     Dates: start: 1991, end: 2017
  26. PREDNISONE. [Concomitant]
     Active Substance: PREDNISONE
  27. LIDOCAINE. [Concomitant]
     Active Substance: LIDOCAINE
  28. CITALOPRAM [Concomitant]
     Active Substance: CITALOPRAM HYDROBROMIDE
  29. SODIUM CHLORIDE. [Concomitant]
     Active Substance: SODIUM CHLORIDE
  30. BUPIVACAINE. [Concomitant]
     Active Substance: BUPIVACAINE
  31. NEXIUM 24HR [Suspect]
     Active Substance: ESOMEPRAZOLE MAGNESIUM
     Route: 048
  32. AMLODIPINE [Concomitant]
     Active Substance: AMLODIPINE BESYLATE
  33. CHANTIX [Concomitant]
     Active Substance: VARENICLINE TARTRATE
  34. SPIRONOLACTONE. [Concomitant]
     Active Substance: SPIRONOLACTONE
  35. TRAMADOL. [Concomitant]
     Active Substance: TRAMADOL
  36. XANAX [Concomitant]
     Active Substance: ALPRAZOLAM

REACTIONS (3)
  - Chronic kidney disease [Not Recovered/Not Resolved]
  - Renal failure [Unknown]
  - Acute kidney injury [Unknown]

NARRATIVE: CASE EVENT DATE: 2015
